FAERS Safety Report 7007274-1 (Version None)
Quarter: 2010Q3

REPORT INFORMATION
  Report Type: 
  Country: None (occurrence: None)
  Receive Date: 20100922
  Receipt Date: 20100913
  Transmission Date: 20110219
  Serious: Yes (Hospitalization)
  Sender: FDA-Public Use
  Company Number: PHFR2010IE03033

PATIENT
  Sex: Male

DRUGS (2)
  1. CLOZARIL [Suspect]
     Indication: SCHIZOPHRENIA
     Dosage: UNK
     Route: 048
     Dates: start: 19950801
  2. CLOZARIL [Suspect]
     Dosage: 600 MG (VIA NG TUBE)

REACTIONS (6)
  - CARDIAC ARREST [None]
  - COMA [None]
  - DRUG DOSE OMISSION [None]
  - GASTROINTESTINAL TUBE INSERTION [None]
  - INTESTINAL PERFORATION [None]
  - WRONG TECHNIQUE IN DRUG USAGE PROCESS [None]
